FAERS Safety Report 4332814-0 (Version None)
Quarter: 2004Q1

REPORT INFORMATION
  Report Type: 
  Country: None (occurrence: None)
  Receive Date: 20040330
  Receipt Date: 20040315
  Transmission Date: 20041129
  Serious: Yes (Hospitalization)
  Sender: FDA-Public Use
  Company Number: S04-USA-01400-01

PATIENT
  Age: 76 Year
  Sex: Male

DRUGS (15)
  1. NAMENDA [Suspect]
     Indication: DEMENTIA ALZHEIMER'S TYPE
     Dosage: 10 MG QD PO
     Route: 048
     Dates: start: 20040311, end: 20040311
  2. NAMENDA [Suspect]
     Indication: DEMENTIA ALZHEIMER'S TYPE
     Dosage: 5 MG QD PO
     Route: 048
     Dates: start: 20040304, end: 20040310
  3. ARICEPT [Suspect]
     Indication: DEMENTIA ALZHEIMER'S TYPE
     Dosage: 10 MG QD
     Dates: start: 20030701
  4. LITHIUM [Suspect]
     Indication: BIPOLAR DISORDER
     Dosage: 300 MG BID
     Dates: start: 19950101, end: 20040314
  5. LIPITOR [Concomitant]
  6. ACIPHEX [Concomitant]
  7. VIOXX [Concomitant]
  8. MYSOLINE [Concomitant]
  9. NEXIUM [Concomitant]
  10. ALPHAGAN [Concomitant]
  11. XALATAN [Concomitant]
  12. HYDROCHLOROTHIAZIDE [Concomitant]
  13. METAMUCIL-2 [Concomitant]
  14. VITAMIN E [Concomitant]
  15. VITAMIN C [Concomitant]

REACTIONS (20)
  - ABASIA [None]
  - ACTIVITIES OF DAILY LIVING IMPAIRED [None]
  - AMNESIA [None]
  - ASTHENIA [None]
  - CONFUSIONAL STATE [None]
  - DEHYDRATION [None]
  - DRUG INTERACTION [None]
  - DRUG LEVEL INCREASED [None]
  - DRUG TOXICITY [None]
  - DYSARTHRIA [None]
  - DYSSTASIA [None]
  - ENCEPHALOPATHY [None]
  - FAECAL INCONTINENCE [None]
  - FATIGUE [None]
  - GENERAL PHYSICAL HEALTH DETERIORATION [None]
  - INSOMNIA [None]
  - MENTAL STATUS CHANGES [None]
  - RENAL FAILURE CHRONIC [None]
  - TREMOR [None]
  - URINARY INCONTINENCE [None]
